FAERS Safety Report 21579412 (Version 2)
Quarter: 2022Q4

REPORT INFORMATION
  Report Type: Spontaneous
  Country: RU (occurrence: RU)
  Receive Date: 20221110
  Receipt Date: 20221112
  Transmission Date: 20230112
  Serious: Yes (Death)
  Sender: FDA-Public Use
  Company Number: RU-JNJFOC-20221115857

PATIENT
  Age: 61 Year
  Sex: Female
  Weight: 45 kg

DRUGS (8)
  1. UPTRAVI [Suspect]
     Active Substance: SELEXIPAG
     Indication: Pulmonary hypertension
     Route: 048
     Dates: start: 20201020
  2. TORSEMIDE [Concomitant]
     Active Substance: TORSEMIDE
  3. SPIRONOLACTONE [Concomitant]
     Active Substance: SPIRONOLACTONE
  4. DIGOXIN [Concomitant]
     Active Substance: DIGOXIN
  5. NEBIVOLOL [Concomitant]
     Active Substance: NEBIVOLOL
  6. APIXABAN [Concomitant]
     Active Substance: APIXABAN
  7. FERROUS SULFATE [Concomitant]
     Active Substance: FERROUS SULFATE
  8. RIOCIGUAT [Concomitant]
     Active Substance: RIOCIGUAT

REACTIONS (1)
  - Death [Fatal]
